FAERS Safety Report 4898146-7 (Version None)
Quarter: 2006Q1

REPORT INFORMATION
  Report Type: 
  Country: None (occurrence: None)
  Receive Date: 20060106
  Receipt Date: 20050920
  Transmission Date: 20060701
  Serious: Yes (Other)
  Sender: FDA-Public Use
  Company Number: HQWYE625026SEP05

PATIENT
  Age: 53 Year
  Sex: Female
  Weight: 61.29 kg

DRUGS (1)
  1. PRIMATENE MIST [Suspect]
     Dosage: 1 PUFF 1X PER 1 DAY, INHALATION
     Route: 055
     Dates: start: 20050901

REACTIONS (2)
  - COUGH [None]
  - VOMITING [None]
